FAERS Safety Report 10979084 (Version 1)
Quarter: 2015Q1

REPORT INFORMATION
  Report Type: Spontaneous
  Country: US (occurrence: None)
  Receive Date: 20150227
  Receipt Date: 20150227
  Transmission Date: 20150721
  Serious: Yes (Other)
  Sender: FDA-Public Use
  Company Number: LMI-2014-00498

PATIENT
  Age: 84 Year
  Sex: Female
  Weight: 90 kg

DRUGS (18)
  1. METOPROLOL [Concomitant]
     Active Substance: METOPROLOL
  2. AMLODIPINE [Concomitant]
     Active Substance: AMLODIPINE BESYLATE
  3. MORPHINE [Concomitant]
     Active Substance: MORPHINE
  4. ONDANSETRON [Concomitant]
     Active Substance: ONDANSETRON
  5. SIMVASTATIN. [Concomitant]
     Active Substance: SIMVASTATIN
  6. DIOVAN [Concomitant]
     Active Substance: VALSARTAN
  7. DEFINITY [Suspect]
     Active Substance: PERFLUTREN
     Indication: ECHOCARDIOGRAM
     Dates: start: 20141025, end: 20141025
  8. AMIODARONE [Concomitant]
     Active Substance: AMIODARONE
  9. POTASSIUM CHLORIDE. [Concomitant]
     Active Substance: POTASSIUM CHLORIDE
  10. ZOCOR [Concomitant]
     Active Substance: SIMVASTATIN
  11. CARDIZEM (DILTIAZEM) [Concomitant]
  12. GENTAMICIN (EYE DROPS) [Concomitant]
  13. PROTONIX [Concomitant]
     Active Substance: PANTOPRAZOLE SODIUM
  14. LASIX [Concomitant]
     Active Substance: FUROSEMIDE
  15. HEPARIN [Concomitant]
     Active Substance: HEPARIN SODIUM
  16. LATANOPROST (0.005 PERCENT, EYE DROPS) [Concomitant]
  17. MIRAPEX [Concomitant]
     Active Substance: PRAMIPEXOLE DIHYDROCHLORIDE
  18. PREDNISONE. [Concomitant]
     Active Substance: PREDNISONE

REACTIONS (5)
  - Vomiting [None]
  - Seizure like phenomena [None]
  - Cyanosis [None]
  - Eye movement disorder [None]
  - Oxygen saturation decreased [None]

NARRATIVE: CASE EVENT DATE: 20141025
